FAERS Safety Report 6663566-7 (Version None)
Quarter: 2010Q2

REPORT INFORMATION
  Report Type: 
  Country: None (occurrence: None)
  Receive Date: 20100401
  Receipt Date: 20100329
  Transmission Date: 20101027
  Serious: Yes (Other)
  Sender: FDA-Public Use
  Company Number: GB-BRISTOL-MYERS SQUIBB COMPANY-15036908

PATIENT

DRUGS (3)
  1. CISPLATIN [Suspect]
     Indication: TESTICULAR SEMINOMA (PURE)
  2. BLEOMYCIN SULFATE [Suspect]
     Indication: TESTICULAR SEMINOMA (PURE)
  3. ETOPOSIDE [Suspect]
     Indication: TESTICULAR SEMINOMA (PURE)

REACTIONS (1)
  - CAROTID ARTERY THROMBOSIS [None]
